FAERS Safety Report 7332229-7 (Version None)
Quarter: 2011Q1

REPORT INFORMATION
  Report Type: 
  Country: None (occurrence: None)
  Receive Date: 20110304
  Receipt Date: 20110228
  Transmission Date: 20110831
  Serious: Yes (Other)
  Sender: FDA-Public Use
  Company Number: US-ROCHE-751357

PATIENT
  Sex: Female
  Weight: 66.7 kg

DRUGS (4)
  1. ACCUTANE [Suspect]
     Indication: ACNE
     Route: 065
     Dates: start: 19960120, end: 19960801
  2. CEFTIN [Concomitant]
  3. ENTEX SOLUTION [Concomitant]
  4. PREDNISONE [Concomitant]
     Dates: start: 19950101

REACTIONS (10)
  - WEIGHT DECREASED [None]
  - CONDITION AGGRAVATED [None]
  - PANIC ATTACK [None]
  - INFLAMMATORY BOWEL DISEASE [None]
  - INTESTINAL OBSTRUCTION [None]
  - STRESS [None]
  - CROHN'S DISEASE [None]
  - DEPRESSION [None]
  - INSOMNIA [None]
  - GASTROINTESTINAL ULCER [None]
